FAERS Safety Report 4665445-3 (Version None)
Quarter: 2005Q2

REPORT INFORMATION
  Report Type: 
  Country: None (occurrence: None)
  Receive Date: 20050518
  Receipt Date: 20050518
  Transmission Date: 20051028
  Serious: Yes (Hospitalization)
  Sender: FDA-Public Use
  Company Number: None

PATIENT
  Sex: Male

DRUGS (8)
  1. ASPIRIN [Suspect]
     Dosage: 325 MG DAILY ORAL
     Route: 048
  2. LISINOPRIL [Concomitant]
  3. IBUPROFEN [Concomitant]
  4. METOPROLOL [Concomitant]
  5. APAP W/ CODEINE [Concomitant]
  6. SIMVASTATIN [Concomitant]
  7. GLYBURBIDE [Concomitant]
  8. METFORMIN HCL [Concomitant]

REACTIONS (1)
  - HAEMATOCHEZIA [None]
